FAERS Safety Report 8791192 (Version 1)
Quarter: 2012Q4

REPORT INFORMATION
  Report Type: Spontaneous
  Country: US (occurrence: None)
  Receive Date: 20120913
  Receipt Date: 20120913
  Transmission Date: 20130627
  Serious: No
  Sender: FDA-Public Use
  Company Number: None

PATIENT
  Sex: Female
  Weight: 81.65 kg

DRUGS (1)
  1. BROVANA [Suspect]
     Indication: COPD
     Dates: start: 20111113, end: 201205

REACTIONS (2)
  - Tic [None]
  - Myalgia [None]
